FAERS Safety Report 7085508-5 (Version None)
Quarter: 2010Q4

REPORT INFORMATION
  Report Type: 
  Country: None (occurrence: None)
  Receive Date: 20101028
  Receipt Date: 20101018
  Transmission Date: 20110411
  Serious: Yes (Congenital Anomaly)
  Sender: FDA-Public Use
  Company Number: 1000016970

PATIENT

DRUGS (1)
  1. CITALOPRAM HYDROBROMIDE [Suspect]
     Dosage: TRANSPLACENTAL
     Route: 064

REACTIONS (6)
  - ABORTION INDUCED [None]
  - CONGENITAL AORTIC ANOMALY [None]
  - HEART DISEASE CONGENITAL [None]
  - MATERNAL DRUGS AFFECTING FOETUS [None]
  - PULMONARY ARTERY ATRESIA [None]
  - TRANSPOSITION OF THE GREAT VESSELS [None]
